FAERS Safety Report 5451923-6 (Version None)
Quarter: 2007Q3

REPORT INFORMATION
  Report Type: 
  Country: None (occurrence: None)
  Receive Date: 20070912
  Receipt Date: 20070830
  Transmission Date: 20080115
  Serious: Yes (Disabling)
  Sender: FDA-Public Use
  Company Number: 20070223

PATIENT
  Age: 27 Year
  Sex: Female

DRUGS (1)
  1. VENOFER [Suspect]
     Indication: IRON DEFICIENCY ANAEMIA
     Dosage: 200 MG TWICE
     Dates: start: 20070808, end: 20070810

REACTIONS (4)
  - CYANOSIS [None]
  - ERYTHEMA [None]
  - PAIN IN EXTREMITY [None]
  - THROMBOSIS [None]
